FAERS Safety Report 8585447-4 (Version None)
Quarter: 2012Q3

REPORT INFORMATION
  Report Type: 
  Country: None (occurrence: None)
  Receive Date: 20120810
  Receipt Date: 20120802
  Transmission Date: 20120928
  Serious: Yes (Hospitalization)
  Sender: FDA-Public Use
  Company Number: JP-VERTEX PHARMACEUTICALS INC.-AE-2012-011710

PATIENT
  Age: 47 Year
  Sex: Male

DRUGS (14)
  1. RIBAVIRIN [Concomitant]
     Route: 048
     Dates: start: 20120606, end: 20120612
  2. PEGINTERFERON ALFA-2B [Concomitant]
     Route: 058
     Dates: start: 20120509, end: 20120529
  3. MUCOSTA [Concomitant]
     Route: 048
     Dates: start: 20120509, end: 20120511
  4. TELAVIC (TELAPREVIR) [Suspect]
     Indication: HEPATITIS C
     Route: 048
     Dates: start: 20120509, end: 20120711
  5. RIBAVIRIN [Concomitant]
     Indication: HEPATITIS C
     Route: 048
     Dates: start: 20120509, end: 20120522
  6. PEGINTERFERON ALFA-2B [Concomitant]
     Route: 058
     Dates: start: 20120621, end: 20120711
  7. RIBAVIRIN [Concomitant]
     Route: 048
     Dates: start: 20120530, end: 20120605
  8. RIBAVIRIN [Concomitant]
     Route: 048
     Dates: start: 20120523, end: 20120529
  9. RIBAVIRIN [Concomitant]
     Route: 048
     Dates: start: 20120613, end: 20120711
  10. PEGINTERFERON ALFA-2B [Concomitant]
     Route: 058
     Dates: start: 20120530, end: 20120605
  11. PEGINTERFERON ALFA-2B [Concomitant]
     Route: 058
     Dates: start: 20120613, end: 20120620
  12. LOXONIN [Concomitant]
     Route: 048
     Dates: start: 20120509, end: 20120511
  13. MOTILIUM [Concomitant]
     Route: 048
     Dates: start: 20120516, end: 20120711
  14. PEGINTERFERON ALFA-2B [Concomitant]
     Route: 058
     Dates: start: 20120606, end: 20120612

REACTIONS (1)
  - SYNCOPE [None]
